FAERS Safety Report 4885467-7 (Version None)
Quarter: 2005Q4

REPORT INFORMATION
  Report Type: 
  Country: None (occurrence: None)
  Receive Date: 20051220
  Receipt Date: 20050531
  Transmission Date: 20060501
  Serious: Yes (Other)
  Sender: FDA-Public Use
  Company Number: HQWYE134802JUN05

PATIENT
  Age: 44 Year
  Sex: Female
  Weight: 60.84 kg

DRUGS (2)
  1. EFFEXOR XR [Suspect]
     Indication: ANXIETY
     Dosage: 150 MG 1X PER 1 DAY
     Dates: start: 20050204, end: 20050525
  2. EFFEXOR XR [Suspect]
     Indication: DEPRESSION
     Dosage: 150 MG 1X PER 1 DAY
     Dates: start: 20050204, end: 20050525

REACTIONS (1)
  - HEPATIC ENZYME INCREASED [None]
